FAERS Safety Report 9329012 (Version 3)
Quarter: 2013Q3

REPORT INFORMATION
  Report Type: Spontaneous
  Country: DE (occurrence: DE)
  Receive Date: 20130604
  Receipt Date: 20130712
  Transmission Date: 20140515
  Serious: Yes (Hospitalization, Other)
  Sender: FDA-Public Use
  Company Number: DE-BRISTOL-MYERS SQUIBB COMPANY-18774265

PATIENT
  Sex: Female

DRUGS (1)
  1. YERVOY [Suspect]
     Indication: MALIGNANT MELANOMA
     Dates: start: 20130319

REACTIONS (3)
  - Blindness [Recovering/Resolving]
  - Malignant neoplasm progression [Unknown]
  - Uveitis [Unknown]
